FAERS Safety Report 18410111 (Version 1)
Quarter: 2020Q4

REPORT INFORMATION
  Report Type: Spontaneous
  Country: US (occurrence: US)
  Receive Date: 20201021
  Receipt Date: 20201021
  Transmission Date: 20210114
  Serious: Yes (Hospitalization)
  Sender: FDA-Public Use
  Company Number: None

PATIENT
  Age: 74 Year
  Sex: Female

DRUGS (19)
  1. ALVESCO, [Concomitant]
     Active Substance: CICLESONIDE
  2. ELAVIL, [Concomitant]
  3. MAGNESIUM-OX, [Concomitant]
  4. NEXIUM [Concomitant]
     Active Substance: ESOMEPRAZOLE MAGNESIUM
  5. TRELEGY ELLIPT, [Concomitant]
  6. PULMOZYME, [Concomitant]
  7. SPIRIVA, [Concomitant]
  8. XIIDRA [Concomitant]
     Active Substance: LIFITEGRAST
  9. SOD CHL 3% NEPHRON, [Concomitant]
     Active Substance: SODIUM CHLORIDE
  10. ESCITALOPRAM, [Concomitant]
  11. TOBRAMYCIN 300MG/5ML GEQ TOBI [Suspect]
     Active Substance: TOBRAMYCIN
     Indication: BRONCHIECTASIS
     Dosage: ?          OTHER DOSE:1 VIAL;OTHER ROUTE:NEB?
     Dates: start: 20160308
  12. FORADIL, [Concomitant]
  13. PANTOPRAZOLE, [Concomitant]
  14. VERAPAMIL, [Concomitant]
  15. ATIVAN, [Concomitant]
  16. METOPROL SUC ER, [Concomitant]
  17. PREDNISONE, [Concomitant]
  18. FAMOTIDINE, [Concomitant]
  19. TRAZODONE, [Concomitant]

REACTIONS (1)
  - Bronchial disorder [None]

NARRATIVE: CASE EVENT DATE: 20200922
